FAERS Safety Report 6222513-2 (Version None)
Quarter: 2009Q2

REPORT INFORMATION
  Report Type: 
  Country: None (occurrence: None)
  Receive Date: 20090611
  Receipt Date: 20090604
  Transmission Date: 20091009
  Serious: Yes (Death)
  Sender: FDA-Public Use
  Company Number: IT-B.I. PHARMACEUTICALS,INC./RIDGEFIELD-2009-IT-00094IT

PATIENT
  Sex: Male

DRUGS (3)
  1. MIRAPEX [Suspect]
     Indication: PARKINSON'S DISEASE
     Dates: end: 20081001
  2. REQUIP [Suspect]
     Indication: PARKINSON'S DISEASE
     Dates: start: 20020101
  3. MADOPAR [Suspect]
     Indication: PARKINSON'S DISEASE
     Dates: start: 20020101

REACTIONS (2)
  - COMPLETED SUICIDE [None]
  - PATHOLOGICAL GAMBLING [None]
